FAERS Safety Report 9924304 (Version 3)
Quarter: 2014Q1

REPORT INFORMATION
  Report Type: Spontaneous
  Country: IL (occurrence: IL)
  Receive Date: 20140226
  Receipt Date: 20140306
  Transmission Date: 20141002
  Serious: Yes (Disabling, Other)
  Sender: FDA-Public Use
  Company Number: IL-AMGEN-ISRSP2014006410

PATIENT
  Age: 57 Year
  Sex: Female
  Weight: 66 kg

DRUGS (2)
  1. VECTIBIX [Suspect]
     Indication: COLORECTAL CANCER METASTATIC
     Dosage: 396 MG, EVERY 2 WEEKS (4 VIALS, 6MG/KG)
     Route: 042
     Dates: start: 20130909
  2. IRINOTECAN [Suspect]
     Indication: COLORECTAL CANCER METASTATIC
     Dosage: UNK
     Route: 042
     Dates: start: 20131230

REACTIONS (2)
  - Conjunctivitis [Recovering/Resolving]
  - Quality of life decreased [Unknown]
